FAERS Safety Report 9356153 (Version 1)
Quarter: 2013Q2

REPORT INFORMATION
  Report Type: Spontaneous
  Country: US (occurrence: US)
  Receive Date: 20130619
  Receipt Date: 20130619
  Transmission Date: 20140414
  Serious: Yes (Other)
  Sender: FDA-Public Use
  Company Number: US-ELI_LILLY_AND_COMPANY-US201306004390

PATIENT
  Age: 68 Year
  Sex: Male

DRUGS (5)
  1. EFFIENT [Suspect]
     Indication: MYOCARDIAL INFARCTION
     Dosage: 10 MG, QD
     Route: 048
     Dates: start: 20121115
  2. NITROGLYCERIN [Concomitant]
  3. SIMVASTATIN [Concomitant]
  4. SYMBICORT [Concomitant]
  5. SPIRIVA [Concomitant]

REACTIONS (1)
  - Throat cancer [Unknown]
